FAERS Safety Report 7323383-1 (Version None)
Quarter: 2011Q1

REPORT INFORMATION
  Report Type: 
  Country: None (occurrence: None)
  Receive Date: 20110203
  Receipt Date: 20110125
  Transmission Date: 20110831
  Serious: Yes (Disabling)
  Sender: FDA-Public Use
  Company Number: 2011027424

PATIENT
  Age: 70 Year
  Sex: Female
  Weight: 73.0291 kg

DRUGS (6)
  1. HIZENTRA [Suspect]
     Indication: IMMUNODEFICIENCY COMMON VARIABLE
     Dosage: 15 G 1X/WEEK, 75 ML WEEKLY, SUBCUTANEOUS
     Route: 058
     Dates: start: 20101001
  2. SINGULAIR [Concomitant]
  3. AUGMENTIN '125' [Concomitant]
  4. NASACORT [Concomitant]
  5. PREDNISONE BURST (PREDNISONE) [Concomitant]
  6. ASMANEX TWISTHALER [Concomitant]

REACTIONS (1)
  - AMNESIA [None]
